FAERS Safety Report 5494178-9 (Version None)
Quarter: 2007Q4

REPORT INFORMATION
  Report Type: 
  Country: None (occurrence: None)
  Receive Date: 20071023
  Receipt Date: 20071023
  Transmission Date: 20080405
  Serious: No
  Sender: FDA-Public Use
  Company Number: None

PATIENT
  Age: 54 Year
  Sex: Female
  Weight: 70.7611 kg

DRUGS (1)
  1. PREDNISONE [Suspect]
     Indication: MYOPATHY
     Dosage: 15 MG DAILY PO
     Route: 048
     Dates: start: 20040601, end: 20041101

REACTIONS (2)
  - RASH ERYTHEMATOUS [None]
  - RASH PRURITIC [None]
